FAERS Safety Report 17886926 (Version 1)
Quarter: 2020Q2

REPORT INFORMATION
  Report Type: Report from Study
  Country: ES (occurrence: ES)
  Receive Date: 20200611
  Receipt Date: 20200611
  Transmission Date: 20200714
  Serious: Yes (Life-Threatening, Hospitalization, Other)
  Sender: FDA-Public Use
  Company Number: ES-BRISTOL-MYERS SQUIBB COMPANY-BMS-2020-045775

PATIENT
  Age: 72 Year
  Sex: Male
  Weight: 78.6 kg

DRUGS (2)
  1. NIVOLUMAB [Suspect]
     Active Substance: NIVOLUMAB
     Indication: MALIGNANT MELANOMA
     Dosage: 240 MILLIGRAM, QD
     Route: 042
     Dates: start: 20200527
  2. URELUMAB [Suspect]
     Active Substance: URELUMAB
     Indication: MALIGNANT MELANOMA
     Dosage: 8 MILLIGRAM, Q4WK
     Route: 036
     Dates: start: 20200513

REACTIONS (2)
  - Transaminases increased [Not Recovered/Not Resolved]
  - Thrombocytopenia [Not Recovered/Not Resolved]

NARRATIVE: CASE EVENT DATE: 20200605
